FAERS Safety Report 5733591-9 (Version None)
Quarter: 2008Q2

REPORT INFORMATION
  Report Type: 
  Country: None (occurrence: None)
  Receive Date: 20080509
  Receipt Date: 20080508
  Transmission Date: 20081010
  Serious: Yes (Other)
  Sender: FDA-Public Use
  Company Number: DE-BRISTOL-MYERS SQUIBB COMPANY-14166516

PATIENT
  Age: 48 Year
  Sex: Female
  Weight: 66 kg

DRUGS (2)
  1. ABILIFY [Suspect]
     Dosage: 6 TABLETS OF ABILIFY 15 MG
     Route: 048
     Dates: start: 20080427
  2. TRUXAL [Suspect]
     Dosage: 4 SUGAR-COATED TABLETS OF TRUXAL 15 MG
     Route: 048
     Dates: start: 20080427

REACTIONS (2)
  - OVERDOSE [None]
  - SUICIDE ATTEMPT [None]
